FAERS Safety Report 9080521 (Version 1)
Quarter: 2013Q1

REPORT INFORMATION
  Report Type: Spontaneous
  Country: US (occurrence: US)
  Receive Date: 20130130
  Receipt Date: 20130130
  Transmission Date: 20140127
  Serious: No
  Sender: FDA-Public Use
  Company Number: US-ABBOTT-12P-163-0958152-00

PATIENT
  Sex: Female

DRUGS (5)
  1. HUMIRA 40 MG/0.8 ML PEN [Suspect]
     Indication: CROHN^S DISEASE
     Dosage: NURSE DID NOT KNOW ANY LOT NUMBERS
     Route: 058
  2. IMURAN [Suspect]
     Indication: CROHN^S DISEASE
  3. PREDNISONE [Suspect]
     Indication: CROHN^S DISEASE
  4. CIPRO [Concomitant]
     Indication: FEMALE GENITAL TRACT FISTULA
  5. FLAGYL [Concomitant]
     Indication: FEMALE GENITAL TRACT FISTULA

REACTIONS (5)
  - Vulvovaginal swelling [Not Recovered/Not Resolved]
  - Vulvovaginal pain [Not Recovered/Not Resolved]
  - Dysuria [Not Recovered/Not Resolved]
  - Pain [Not Recovered/Not Resolved]
  - Vaginal exfoliation [Not Recovered/Not Resolved]
